FAERS Safety Report 6368627-8 (Version None)
Quarter: 2009Q3

REPORT INFORMATION
  Report Type: 
  Country: None (occurrence: None)
  Receive Date: 20090917
  Receipt Date: 20090917
  Transmission Date: 20100115
  Serious: Yes (Hospitalization, Disabling)
  Sender: FDA-Public Use
  Company Number: None

PATIENT
  Age: 93 Year
  Sex: Female
  Weight: 64 kg

DRUGS (1)
  1. NITROFURANTOIN [Suspect]

REACTIONS (3)
  - ANAEMIA [None]
  - BONE MARROW TOXICITY [None]
  - THROMBOCYTOPENIA [None]
